FAERS Safety Report 15150481 (Version 1)
Quarter: 2018Q3

REPORT INFORMATION
  Report Type: Report from Study
  Country: IT (occurrence: IT)
  Receive Date: 20180716
  Receipt Date: 20180716
  Transmission Date: 20181010
  Serious: Yes (Other)
  Sender: FDA-Public Use
  Company Number: IT-MYLANLABS-2018M1050995

PATIENT
  Age: 4 Year
  Sex: Male

DRUGS (1)
  1. SERTRALINE [Suspect]
     Active Substance: SERTRALINE HYDROCHLORIDE
     Indication: PRODUCT USED FOR UNKNOWN INDICATION
     Dosage: 50 MG, TOTAL
     Dates: start: 20180118, end: 20180118

REACTIONS (3)
  - No adverse event [Unknown]
  - Drug abuse [Unknown]
  - Medication error [Unknown]

NARRATIVE: CASE EVENT DATE: 20180118
